FAERS Safety Report 12124553 (Version 1)
Quarter: 2016Q1

REPORT INFORMATION
  Report Type: Spontaneous
  Country: QA (occurrence: QA)
  Receive Date: 20160229
  Receipt Date: 20160229
  Transmission Date: 20160526
  Serious: Yes (Hospitalization, Other)
  Sender: FDA-Public Use
  Company Number: QA-009507513-1602QAT011895

PATIENT
  Age: 19 Year
  Sex: Female
  Weight: 40 kg

DRUGS (7)
  1. DOXORUBICIN [Concomitant]
     Active Substance: DOXORUBICIN
     Indication: CHEMOTHERAPY
     Dosage: (30 MG/M2 ) 40 MG ON DAYS 8, 15, 22, AND 29
     Route: 042
  2. VINCRISTINE SULFATE. [Interacting]
     Active Substance: VINCRISTINE SULFATE
     Indication: CHEMOTHERAPY
     Dosage: (1.5 MG/M2) 2 MG ON DAYS 8, 15, 22, AND 29
     Route: 042
     Dates: start: 20100702
  3. POSACONAZOLE [Suspect]
     Active Substance: POSACONAZOLE
     Indication: PROPHYLAXIS
     Dosage: 200 MG, TID
     Dates: start: 20100702, end: 20100719
  4. METHOTREXATE [Concomitant]
     Active Substance: METHOTREXATE
     Dosage: 12 MG, ON DAYS 11 AND 18
     Route: 037
  5. HYDROCORTISONE. [Concomitant]
     Active Substance: HYDROCORTISONE
     Dosage: 50 MG ON DAY 18
     Route: 037
  6. ASPARAGINASE [Concomitant]
     Active Substance: ASPARAGINASE
     Dosage: (5000 UNITS/M2 ) 6500 UNITS OVER 60 MINUTES, DAYS 12, 15, 18, 21, AND 24
     Route: 042
  7. PREDNISOLONE. [Concomitant]
     Active Substance: PREDNISOLONE
     Indication: CHEMOTHERAPY
     Dosage: (60 MG/M2 ) 80 MG EVERYDAY
     Route: 048
     Dates: start: 20100623

REACTIONS (1)
  - Generalised tonic-clonic seizure [Recovered/Resolved]

NARRATIVE: CASE EVENT DATE: 20100719
